FAERS Safety Report 9722868 (Version 2)
Quarter: 2014Q1

REPORT INFORMATION
  Report Type: Spontaneous
  Country: US (occurrence: US)
  Receive Date: 20131202
  Receipt Date: 20140128
  Transmission Date: 20141002
  Serious: Yes (Hospitalization)
  Sender: FDA-Public Use
  Company Number: US-NOVOPROD-393697

PATIENT
  Age: 50 Year
  Sex: Female
  Weight: 85.26 kg

DRUGS (2)
  1. NOVOLOG [Suspect]
     Indication: TYPE 2 DIABETES MELLITUS
     Dosage: 30 U, TID
     Route: 058
     Dates: start: 20120504
  2. LANTUS [Suspect]
     Indication: TYPE 2 DIABETES MELLITUS
     Dosage: 50 U, QD
     Route: 058

REACTIONS (4)
  - Hepatic cirrhosis [Recovered/Resolved]
  - Condition aggravated [Recovered/Resolved]
  - Vertigo [Unknown]
  - Chest pain [Unknown]
